FAERS Safety Report 13337888 (Version 1)
Quarter: 2017Q1

REPORT INFORMATION
  Report Type: Spontaneous
  Country: US (occurrence: US)
  Receive Date: 20170315
  Receipt Date: 20170315
  Transmission Date: 20170428
  Serious: Yes (Hospitalization)
  Sender: FDA-Public Use
  Company Number: None

PATIENT
  Age: 77 Year
  Sex: Female
  Weight: 88.36 kg

DRUGS (4)
  1. ETOPOSIDE (VP-16) [Suspect]
     Active Substance: ETOPOSIDE
     Dates: end: 20140917
  2. VANCOMYCIN [Concomitant]
     Active Substance: VANCOMYCIN
  3. CISPLATIN. [Suspect]
     Active Substance: CISPLATIN
     Dates: end: 20140917
  4. ZOZYN [Concomitant]

REACTIONS (3)
  - Neutrophil count decreased [None]
  - Blood creatinine increased [None]
  - Sepsis [None]

NARRATIVE: CASE EVENT DATE: 20140928
